FAERS Safety Report 7970237-3 (Version None)
Quarter: 2011Q4

REPORT INFORMATION
  Report Type: 
  Country: None (occurrence: None)
  Receive Date: 20111212
  Receipt Date: 20111206
  Transmission Date: 20120403
  Serious: Yes (Other)
  Sender: FDA-Public Use
  Company Number: US-GENZYME-CAMP-1000621

PATIENT
  Sex: Female
  Weight: 62.404 kg

DRUGS (22)
  1. SUDAFED 12 HOUR [Concomitant]
     Indication: RESPIRATORY TRACT CONGESTION
     Dosage: 1 TABLET, PRN
     Route: 048
     Dates: start: 20091110, end: 20091113
  2. SOLU-MEDROL [Concomitant]
     Indication: MULTIPLE SCLEROSIS RELAPSE
     Dosage: 1 G, QD
     Route: 042
     Dates: start: 20100120, end: 20100122
  3. ACYCLOVIR [Concomitant]
     Indication: PRODUCT USED FOR UNKNOWN INDICATION
  4. ALEMTUZUMAB [Suspect]
     Dosage: 24 MG, QDX3
     Route: 042
     Dates: start: 20100331, end: 20100402
  5. CALCIUM [Concomitant]
     Indication: PRODUCT USED FOR UNKNOWN INDICATION
     Dosage: 1500 MG, QD
     Route: 048
     Dates: start: 20020101
  6. LEVAQUIN [Concomitant]
     Indication: RESPIRATORY TRACT INFECTION
     Dosage: 500 MG, QD
     Route: 048
     Dates: start: 20091116, end: 20091126
  7. ROBITUSSIN DM [Concomitant]
     Indication: COUGH
     Dosage: 5 ML, PRN
     Route: 048
     Dates: start: 20091116, end: 20091126
  8. MULTI-VITAMIN [Concomitant]
     Indication: MEDICAL DIET
     Dosage: 1 TABLET, QD
     Route: 048
     Dates: start: 20040101
  9. MACROBID [Concomitant]
     Indication: URINARY TRACT INFECTION
     Dosage: 100 MG, BID
     Route: 048
     Dates: start: 20091113
  10. LEVAQUIN [Concomitant]
     Dosage: 500 MG, QD
     Route: 048
     Dates: start: 20100226, end: 20100304
  11. LYRICA [Concomitant]
     Indication: PAIN
     Dosage: 50-75 MG, PRN
     Route: 048
     Dates: start: 20100309
  12. ALEMTUZUMAB [Suspect]
     Indication: MULTIPLE SCLEROSIS
     Dosage: 24 MG, QD
     Route: 042
     Dates: start: 20090327, end: 20090327
  13. METHYLPREDNISOLONE [Concomitant]
     Dosage: 1 G, QD
     Route: 042
     Dates: start: 20090330, end: 20090331
  14. VITAMIN D [Concomitant]
     Indication: VITAMIN SUPPLEMENTATION
     Dosage: 1000 IU, QD
     Route: 048
     Dates: start: 20080301
  15. KEFLEX [Concomitant]
     Indication: URINARY TRACT INFECTION
     Dosage: 500 MG, BID
     Route: 048
     Dates: start: 20090818, end: 20091116
  16. ALEMTUZUMAB [Suspect]
     Dosage: 24 MG, QD
     Route: 042
     Dates: start: 20090403, end: 20090403
  17. METHYLPREDNISOLONE [Concomitant]
     Indication: MULTIPLE SCLEROSIS
     Dosage: 1 G, QD
     Route: 042
     Dates: start: 20090327, end: 20090327
  18. METHYLPREDNISOLONE [Concomitant]
     Dosage: 1 G, QDX3
     Route: 042
     Dates: start: 20100331, end: 20100402
  19. NITROFURANTOIN [Concomitant]
     Indication: PRODUCT USED FOR UNKNOWN INDICATION
     Dosage: UNK
  20. ALEMTUZUMAB [Suspect]
     Dosage: 24 MG, QDX3
     Route: 042
     Dates: start: 20090330, end: 20090401
  21. YAZ [Concomitant]
     Indication: CONTRACEPTION
     Dosage: UNK UNK, QD
     Route: 048
     Dates: start: 20090323
  22. MUCINEX D [Concomitant]
     Indication: RESPIRATORY TRACT CONGESTION
     Dosage: 1 TABLET, PRN
     Route: 048
     Dates: start: 20091116, end: 20091126

REACTIONS (7)
  - CD4 LYMPHOCYTES DECREASED [None]
  - VULVAL CANCER STAGE 0 [None]
  - CD8 LYMPHOCYTES DECREASED [None]
  - LYMPHOCYTE COUNT DECREASED [None]
  - VULVOVAGINAL HUMAN PAPILLOMA VIRUS INFECTION [None]
  - VULVAR DYSPLASIA [None]
  - CERVICAL DYSPLASIA [None]
